FAERS Safety Report 8284025-4 (Version None)
Quarter: 2012Q2

REPORT INFORMATION
  Report Type: 
  Country: None (occurrence: None)
  Receive Date: 20120413
  Receipt Date: 20110728
  Transmission Date: 20120825
  Serious: No
  Sender: FDA-Public Use
  Company Number: US-ASTRAZENECA-2010SE17795

PATIENT
  Age: 51 Year
  Sex: Female

DRUGS (1)
  1. NEXIUM [Suspect]
     Route: 048

REACTIONS (12)
  - BURNING MOUTH SYNDROME [None]
  - APHAGIA [None]
  - HYPERHIDROSIS [None]
  - OESOPHAGEAL DISORDER [None]
  - PAIN [None]
  - MALAISE [None]
  - DYSPHONIA [None]
  - ANXIETY [None]
  - DRUG DOSE OMISSION [None]
  - THROAT IRRITATION [None]
  - GASTROOESOPHAGEAL REFLUX DISEASE [None]
  - ILL-DEFINED DISORDER [None]
